FAERS Safety Report 8908162 (Version 2)
Quarter: 2013Q2

REPORT INFORMATION
  Report Type: Spontaneous
  Country: GB (occurrence: GB)
  Receive Date: 20121113
  Receipt Date: 20130624
  Transmission Date: 20140414
  Serious: Yes (Disabling, Other)
  Sender: FDA-Public Use
  Company Number: PHHY2012GB104043

PATIENT
  Age: 48 Year
  Sex: Male

DRUGS (10)
  1. AZATHIOPRINE [Suspect]
     Indication: PEMPHIGUS
     Dosage: 75 MG, BID
     Route: 048
     Dates: start: 20120607
  2. LANSOPRAZOLE [Suspect]
     Indication: PROPHYLAXIS AGAINST GASTROINTESTINAL ULCER
     Dosage: 15 MG, QD
     Route: 048
     Dates: start: 20120528
  3. ALENDRONIC ACID [Suspect]
     Indication: OSTEOPOROSIS PROPHYLAXIS
     Dosage: 70 MG, QW
     Route: 048
     Dates: start: 20120528
  4. PREDNISOLONE [Suspect]
     Indication: PEMPHIGUS
     Dosage: 10 MG, BID
     Route: 048
     Dates: start: 20120518
  5. PREDNISOLONE [Suspect]
     Dosage: 40 MG, QD
     Route: 048
     Dates: start: 20120518
  6. ADCAL-D3 [Suspect]
     Indication: OSTEOPOROSIS PROPHYLAXIS
     Dosage: 1 TABLET BD
     Route: 048
     Dates: start: 20120414
  7. CORSODYL [Concomitant]
     Indication: PEMPHIGUS
     Dosage: 10 ML, BID
     Route: 048
     Dates: start: 20120518, end: 20120601
  8. BETNOVATE-C [Concomitant]
     Route: 061
     Dates: start: 20120711
  9. DERMOVATE [Concomitant]
     Route: 061
     Dates: start: 20120711
  10. DERMOL [Concomitant]
     Route: 061
     Dates: start: 20120614

REACTIONS (3)
  - Temporomandibular joint syndrome [Unknown]
  - Trismus [Unknown]
  - Tremor [Unknown]
